FAERS Safety Report 13934051 (Version 1)
Quarter: 2017Q3

REPORT INFORMATION
  Report Type: Spontaneous
  Country: US (occurrence: US)
  Receive Date: 20170904
  Receipt Date: 20170904
  Transmission Date: 20171127
  Serious: No
  Sender: FDA-Public Use
  Company Number: US-009507513-1708USA006423

PATIENT
  Sex: Male

DRUGS (1)
  1. ZEPATIER [Suspect]
     Active Substance: ELBASVIR\GRAZOPREVIR
     Indication: HEPATITIS C
     Dosage: UNK
     Route: 048

REACTIONS (6)
  - Fatigue [Unknown]
  - Spontaneous penile erection [Unknown]
  - Depression [Unknown]
  - Insomnia [Unknown]
  - Hyperhidrosis [Unknown]
  - Restlessness [Unknown]
